FAERS Safety Report 4973003-6 (Version None)
Quarter: 2006Q2

REPORT INFORMATION
  Report Type: 
  Country: None (occurrence: None)
  Receive Date: 20060414
  Receipt Date: 20060330
  Transmission Date: 20061013
  Serious: Yes (Other)
  Sender: FDA-Public Use
  Company Number: FR-GLAXOSMITHKLINE-B0419231A

PATIENT
  Age: 18 Year
  Sex: Female

DRUGS (4)
  1. COMBIVIR [Suspect]
     Indication: PROPHYLAXIS AGAINST HIV INFECTION
     Route: 048
     Dates: start: 20060213, end: 20060314
  2. TELZIR [Suspect]
     Indication: PROPHYLAXIS AGAINST HIV INFECTION
     Dosage: 700MG TWICE PER DAY
     Route: 048
     Dates: start: 20060213, end: 20060224
  3. NORVIR [Suspect]
     Indication: PROPHYLAXIS AGAINST HIV INFECTION
     Dosage: 100MG TWICE PER DAY
     Route: 048
     Dates: start: 20060213, end: 20060224
  4. NORLEVO [Concomitant]
     Indication: CONTRACEPTION
     Dosage: 750MCG SINGLE DOSE
     Route: 048
     Dates: start: 20060213

REACTIONS (3)
  - DRUG ADMINISTRATION ERROR [None]
  - RASH GENERALISED [None]
  - URTICARIA [None]
